FAERS Safety Report 19210716 (Version 1)
Quarter: 2021Q2

REPORT INFORMATION
  Report Type: Spontaneous
  Country: US (occurrence: US)
  Receive Date: 20210503
  Receipt Date: 20210503
  Transmission Date: 20210717
  Serious: Yes (Death)
  Sender: FDA-Public Use
  Company Number: None

PATIENT
  Age: 81 Year
  Sex: Male

DRUGS (4)
  1. DIPHENHYDRAMINE 25 MG TABLETS [Concomitant]
     Active Substance: DIPHENHYDRAMINE
  2. PROMACTA [Suspect]
     Active Substance: ELTROMBOPAG OLAMINE
     Indication: MYELODYSPLASTIC SYNDROME
     Route: 048
     Dates: start: 20210322, end: 20210422
  3. METOPROLOL ER SUCCINATE 50 MG TABLETS [Concomitant]
  4. MULTIVITAMIN TABLETS [Concomitant]

REACTIONS (1)
  - Blood iron increased [None]

NARRATIVE: CASE EVENT DATE: 20210501
